FAERS Safety Report 20491315 (Version 1)
Quarter: 2022Q1

REPORT INFORMATION
  Report Type: Spontaneous
  Country: US (occurrence: US)
  Receive Date: 20220218
  Receipt Date: 20220218
  Transmission Date: 20220424
  Serious: No
  Sender: FDA-Public Use
  Company Number: US-TRIS PHARMA, INC.-22US010040

PATIENT

DRUGS (3)
  1. DYANAVEL XR [Suspect]
     Active Substance: AMPHETAMINE
     Indication: Product used for unknown indication
     Dosage: 3 MILLILITRE, MORNING
     Dates: end: 20220120
  2. DYANAVEL XR [Suspect]
     Active Substance: AMPHETAMINE
     Dosage: 3 MILLILITRE, MORNING
  3. DYANAVEL XR [Suspect]
     Active Substance: AMPHETAMINE
     Dosage: UNK

REACTIONS (4)
  - Vomiting [Unknown]
  - Agitation [Unknown]
  - Device issue [Unknown]
  - Wrong technique in product usage process [Unknown]

NARRATIVE: CASE EVENT DATE: 20220118
